FAERS Safety Report 9205844 (Version 2)
Quarter: 2013Q2

REPORT INFORMATION
  Report Type: Spontaneous
  Country: US (occurrence: US)
  Receive Date: 20130403
  Receipt Date: 20130531
  Transmission Date: 20140414
  Serious: Yes (Other)
  Sender: FDA-Public Use
  Company Number: US-BAYER-2013-041536

PATIENT
  Age: 29 Year
  Sex: Female

DRUGS (10)
  1. BETASERON [Suspect]
     Indication: MULTIPLE SCLEROSIS
     Dosage: 0.25 MG, QOD
     Route: 058
     Dates: start: 200804
  2. BETASERON [Suspect]
     Indication: MULTIPLE SCLEROSIS
     Dosage: 0.3 MG, QOD
     Route: 058
  3. TYLENOL [PARACETAMOL] [Concomitant]
     Dosage: 500 MG
  4. MILK THISTLE [Concomitant]
  5. MULTIVITAMIN [Concomitant]
  6. VITAMIN D [Concomitant]
     Dosage: 400 UNIT
  7. B COMPLEX [B3,B6,B2,B1 HCL] [Concomitant]
  8. OMEGA 3 [Concomitant]
     Dosage: 1000 MG, UNK
  9. CLARITIN-D [Concomitant]
     Dosage: 5-120 MG
  10. NASONEX [Concomitant]
     Dosage: 50 MCG/AC

REACTIONS (4)
  - Multiple sclerosis relapse [Recovered/Resolved]
  - Influenza like illness [Unknown]
  - Pyrexia [Unknown]
  - Chills [Unknown]
